FAERS Safety Report 4352437-7 (Version None)
Quarter: 2004Q2

REPORT INFORMATION
  Report Type: 
  Country: None (occurrence: None)
  Receive Date: 20040428
  Receipt Date: 20040416
  Transmission Date: 20050107
  Serious: Yes (Hospitalization)
  Sender: FDA-Public Use
  Company Number: 04P-056-0258043-00

PATIENT
  Age: 52 Year
  Sex: Female

DRUGS (7)
  1. HUMIRA [Suspect]
     Indication: POLYARTHRITIS
     Dosage: 40 MG, SUBCUTANEOUS
     Route: 058
     Dates: start: 20040201, end: 20040215
  2. HUMIRA [Suspect]
     Indication: RHEUMATOID ARTHRITIS
     Dosage: 40 MG, SUBCUTANEOUS
     Route: 058
     Dates: start: 20040201, end: 20040215
  3. PREDNISONE [Concomitant]
  4. OMEPRAZOLE [Concomitant]
  5. METHOTREXATE [Concomitant]
  6. CELECOXIB [Concomitant]
  7. METFORMIN HCL [Concomitant]

REACTIONS (8)
  - DIARRHOEA [None]
  - EYELID OEDEMA [None]
  - FATIGUE [None]
  - HOT FLUSH [None]
  - MALAISE [None]
  - NAUSEA [None]
  - URTICARIA [None]
  - VOMITING [None]
